FAERS Safety Report 8838419 (Version 1)
Quarter: 2012Q4

REPORT INFORMATION
  Report Type: 
  Country: US (occurrence: US)
  Receive Date: 20121012
  Receipt Date: 20121012
  Transmission Date: 20130627
  Serious: Yes (Hospitalization)
  Sender: FDA-Public Use
  Company Number: US-EISAI INC-E3810-05986-SPO-US

PATIENT
  Sex: Female
  Weight: 46.7 kg

DRUGS (2)
  1. ACIPHEX (RABEPRAZOLE) [Suspect]
     Indication: GERD
     Route: 048
     Dates: start: 2010
  2. WARFARIN [Concomitant]
     Route: 048

REACTIONS (4)
  - Fall [Recovered/Resolved]
  - Upper limb fracture [Recovered/Resolved]
  - Hip fracture [Recovering/Resolving]
  - Coagulation time prolonged [Not Recovered/Not Resolved]
